FAERS Safety Report 7093977-X (Version None)
Quarter: 2010Q4

REPORT INFORMATION
  Report Type: 
  Country: None (occurrence: None)
  Receive Date: 20101101
  Receipt Date: 20101025
  Transmission Date: 20110411
  Serious: Yes (Disabling)
  Sender: FDA-Public Use
  Company Number: 737303

PATIENT
  Age: 45 Year
  Sex: Female

DRUGS (2)
  1. DEFEROXAMINE MESYLATE [Suspect]
     Indication: THALASSAEMIA BETA
  2. (BLOOD AND RELATED PRODUCTS) [Concomitant]

REACTIONS (4)
  - EYE NAEVUS [None]
  - MACULOPATHY [None]
  - RETINAL DEGENERATION [None]
  - VISUAL ACUITY REDUCED [None]
